FAERS Safety Report 5319116-0 (Version None)
Quarter: 2007Q2

REPORT INFORMATION
  Report Type: 
  Country: None (occurrence: None)
  Receive Date: 20070508
  Receipt Date: 20070507
  Transmission Date: 20071010
  Serious: Yes (Hospitalization)
  Sender: FDA-Public Use
  Company Number: A0650331A

PATIENT
  Age: 2 Year
  Sex: Male
  Weight: 15 kg

DRUGS (3)
  1. CLAVULIN [Suspect]
     Indication: DRUG USE FOR UNKNOWN INDICATION
     Route: 065
     Dates: start: 20070301, end: 20070301
  2. CLAVULIN [Suspect]
     Dosage: 4ML TWICE PER DAY
     Route: 048
     Dates: start: 20070426, end: 20070504
  3. IBUPROFEN [Concomitant]
     Dosage: 20DROP FOUR TIMES PER DAY
     Route: 048
     Dates: start: 20070426, end: 20070430

REACTIONS (3)
  - DRUG ADMINISTRATION ERROR [None]
  - DRUG INEFFECTIVE [None]
  - URTICARIA [None]
